FAERS Safety Report 10076085 (Version 1)
Quarter: 2014Q2

REPORT INFORMATION
  Report Type: Spontaneous
  Country: US (occurrence: None)
  Receive Date: 20140410
  Receipt Date: 20140410
  Transmission Date: 20141212
  Serious: Yes (Hospitalization)
  Sender: FDA-Public Use
  Company Number: UCM201403-000043

PATIENT
  Sex: 0

DRUGS (1)
  1. LAMOTRIGINE [Suspect]

REACTIONS (3)
  - Jaundice neonatal [None]
  - Dehydration [None]
  - Maternal drugs affecting foetus [None]
